FAERS Safety Report 14028054 (Version 1)
Quarter: 2017Q3

REPORT INFORMATION
  Report Type: Spontaneous
  Country: US (occurrence: None)
  Receive Date: 20170930
  Receipt Date: 20170930
  Transmission Date: 20171128
  Serious: Yes (Hospitalization)
  Sender: FDA-Public Use
  Company Number: None

PATIENT
  Age: 63 Year
  Sex: Female
  Weight: 64.4 kg

DRUGS (4)
  1. 5-FLUOROURACIL (5-FU) [Suspect]
     Active Substance: FLUOROURACIL
     Dates: end: 20170911
  2. CAMPTOSAR [Suspect]
     Active Substance: IRINOTECAN HYDROCHLORIDE
     Dates: end: 20170911
  3. LEUCOVORIN CALCIUM. [Suspect]
     Active Substance: LEUCOVORIN CALCIUM
     Dates: end: 20170912
  4. ELOXATIN [Suspect]
     Active Substance: OXALIPLATIN
     Dates: end: 20170911

REACTIONS (6)
  - Nausea [None]
  - Abdominal pain [None]
  - Feeling abnormal [None]
  - Fatigue [None]
  - Pyrexia [None]
  - Blood bilirubin increased [None]

NARRATIVE: CASE EVENT DATE: 20170928
